FAERS Safety Report 14820313 (Version 7)
Quarter: 2021Q2

REPORT INFORMATION
  Report Type: Report from Study
  Country: GT (occurrence: GT)
  Receive Date: 20180427
  Receipt Date: 20210420
  Transmission Date: 20210716
  Serious: Yes (Other)
  Sender: FDA-Public Use
  Company Number: PHHY2015GT022742

PATIENT
  Sex: Female
  Weight: 61.68 kg

DRUGS (8)
  1. GILENYA [Suspect]
     Active Substance: FINGOLIMOD HYDROCHLORIDE
     Indication: MULTIPLE SCLEROSIS
     Dosage: 0.5 MG, QD
     Route: 048
     Dates: start: 20141216
  2. GILENYA [Suspect]
     Active Substance: FINGOLIMOD HYDROCHLORIDE
     Dosage: 0.5 MG, QD  (STARTED ON 27 MAR)
     Route: 048
     Dates: end: 20210413
  3. IRBESARTAN. [Suspect]
     Active Substance: IRBESARTAN
     Indication: PRODUCT USED FOR UNKNOWN INDICATION
     Dosage: UNK
     Route: 065
  4. TOPIRAMATE. [Suspect]
     Active Substance: TOPIRAMATE
     Indication: PRODUCT USED FOR UNKNOWN INDICATION
     Dosage: UNK
     Route: 065
  5. GILENYA [Suspect]
     Active Substance: FINGOLIMOD HYDROCHLORIDE
     Dosage: UNK
     Route: 065
     Dates: start: 20171207
  6. METFORMIN [Concomitant]
     Active Substance: METFORMIN HYDROCHLORIDE
     Indication: PRODUCT USED FOR UNKNOWN INDICATION
     Dosage: UNK
     Route: 065
  7. APROVEL [Concomitant]
     Active Substance: IRBESARTAN
     Indication: PRODUCT USED FOR UNKNOWN INDICATION
     Dosage: UNK
     Route: 065
  8. TEGRETOL [Suspect]
     Active Substance: CARBAMAZEPINE
     Indication: PRODUCT USED FOR UNKNOWN INDICATION
     Dosage: 1.5 DF
     Route: 065

REACTIONS (38)
  - Fatigue [Unknown]
  - Amnesia [Unknown]
  - Speech disorder [Unknown]
  - Stress [Unknown]
  - Nausea [Unknown]
  - Multiple sclerosis relapse [Not Recovered/Not Resolved]
  - Headache [Not Recovered/Not Resolved]
  - Epilepsy [Unknown]
  - Pain [Not Recovered/Not Resolved]
  - Joint dislocation [Unknown]
  - Hypoaesthesia [Unknown]
  - Muscle contractions involuntary [Recovering/Resolving]
  - Disorientation [Unknown]
  - Pain in extremity [Unknown]
  - Pyrexia [Recovered/Resolved]
  - Vomiting [Unknown]
  - Balance disorder [Unknown]
  - Hormone level abnormal [Unknown]
  - Memory impairment [Not Recovered/Not Resolved]
  - Hepatic enzyme increased [Unknown]
  - Feeling cold [Unknown]
  - Inappropriate schedule of product administration [Not Recovered/Not Resolved]
  - Periarthritis [Unknown]
  - Malaise [Not Recovered/Not Resolved]
  - Movement disorder [Unknown]
  - Blindness unilateral [Unknown]
  - Muscle spasms [Recovering/Resolving]
  - Feeling abnormal [Not Recovered/Not Resolved]
  - Gait disturbance [Unknown]
  - Vertigo [Unknown]
  - Hypoacusis [Unknown]
  - Chills [Unknown]
  - Eye disorder [Not Recovered/Not Resolved]
  - Hypersomnia [Unknown]
  - Spinal pain [Unknown]
  - Blood glucose increased [Unknown]
  - Insomnia [Unknown]
  - Anxiety [Unknown]
